FAERS Safety Report 14754726 (Version 1)
Quarter: 2018Q2

REPORT INFORMATION
  Report Type: Report from Study
  Country: EG (occurrence: EG)
  Receive Date: 20180413
  Receipt Date: 20180413
  Transmission Date: 20180711
  Serious: Yes (Death)
  Sender: FDA-Public Use
  Company Number: EG-CIPLA (EU) LIMITED-2018EG15627

PATIENT

DRUGS (2)
  1. GEMCITABINE [Suspect]
     Active Substance: GEMCITABINE\GEMCITABINE HYDROCHLORIDE
     Indication: BLADDER CANCER
     Dosage: 1000MG/M2, OVER 30MINUTES ON DAYS 1, 8, AND 15
     Route: 042
  2. CISPLATIN. [Suspect]
     Active Substance: CISPLATIN
     Indication: BLADDER CANCER
     Dosage: 70MG/M2, OVER 30MINUTES ON DAY 2
     Route: 042

REACTIONS (1)
  - Intestinal obstruction [Fatal]
